FAERS Safety Report 6385296-1 (Version None)
Quarter: 2009Q4

REPORT INFORMATION
  Report Type: 
  Country: None (occurrence: None)
  Receive Date: 20091002
  Receipt Date: 20080822
  Transmission Date: 20100525
  Serious: No
  Sender: FDA-Public Use
  Company Number: US-ASTRAZENECA-2008UW17021

PATIENT
  Age: 63 Year
  Sex: Female
  Weight: 70.3 kg

DRUGS (6)
  1. ARIMIDEX [Suspect]
     Indication: BREAST CANCER FEMALE
     Route: 048
     Dates: start: 20070501
  2. FELDINE [Concomitant]
  3. SYNTHROID [Concomitant]
  4. ZANTAC [Concomitant]
  5. MULTI-VITAMIN [Concomitant]
  6. CALTRATE D [Concomitant]

REACTIONS (2)
  - PILOERECTION [None]
  - VISION BLURRED [None]
